FAERS Safety Report 5764190-0 (Version None)
Quarter: 2008Q2

REPORT INFORMATION
  Report Type: 
  Country: None (occurrence: None)
  Receive Date: 20080610
  Receipt Date: 20080530
  Transmission Date: 20081010
  Serious: Yes (Other)
  Sender: FDA-Public Use
  Company Number: US-AMGEN-STX277174

PATIENT
  Sex: Female
  Weight: 102.2 kg

DRUGS (10)
  1. ENBREL [Suspect]
     Indication: RHEUMATOID ARTHRITIS
     Route: 058
     Dates: start: 20040601, end: 20050728
  2. METHOTREXATE [Concomitant]
     Route: 065
     Dates: end: 20050616
  3. PREDNISONE TAB [Concomitant]
     Route: 065
  4. FOLIC ACID [Concomitant]
     Route: 065
  5. COZAAR [Concomitant]
     Route: 065
  6. LASIX [Concomitant]
     Route: 065
  7. MS CONTIN [Concomitant]
     Route: 065
  8. FLEXERIL [Concomitant]
     Route: 065
  9. ALLEGRA [Concomitant]
     Route: 065
  10. TOPAMAX [Concomitant]
     Route: 065

REACTIONS (3)
  - MULTIPLE SCLEROSIS [None]
  - NEOPLASM SKIN [None]
  - SYSTEMIC LUPUS ERYTHEMATOSUS [None]
